FAERS Safety Report 18495415 (Version 3)
Quarter: 2021Q1

REPORT INFORMATION
  Report Type: Spontaneous
  Country: DE (occurrence: DE)
  Receive Date: 20201112
  Receipt Date: 20210129
  Transmission Date: 20210419
  Serious: Yes (Other)
  Sender: FDA-Public Use
  Company Number: DE-BRISTOL-MYERS SQUIBB COMPANY-BMS-2020-091949

PATIENT
  Age: 92 Year
  Sex: Male

DRUGS (1)
  1. LITALIR [Suspect]
     Active Substance: HYDROXYUREA
     Indication: POLYCYTHAEMIA VERA
     Dosage: 500 MILLIGRAM, ON 2 DAYS PER WEEK 2 X DAILY, THE OTHER DAYS PER WEEK 1 X DAILY
     Route: 065

REACTIONS (2)
  - Herpes zoster [Unknown]
  - Cardiac failure congestive [Unknown]
